FAERS Safety Report 12849319 (Version 1)
Quarter: 2016Q4

REPORT INFORMATION
  Report Type: Spontaneous
  Country: MX (occurrence: MX)
  Receive Date: 20161014
  Receipt Date: 20161014
  Transmission Date: 20170207
  Serious: Yes (Death, Hospitalization)
  Sender: FDA-Public Use
  Company Number: MX-B.I. PHARMACEUTICALS,INC./RIDGEFIELD-2016-BI-063998

PATIENT
  Age: 56 Year
  Sex: Male

DRUGS (1)
  1. VARGATEF [Suspect]
     Active Substance: NINTEDANIB
     Indication: LUNG NEOPLASM MALIGNANT
     Route: 065

REACTIONS (4)
  - Disease progression [Fatal]
  - Dyspnoea [Unknown]
  - Fatigue [Unknown]
  - Pneumonia [Fatal]

NARRATIVE: CASE EVENT DATE: 201607
